FAERS Safety Report 20385200 (Version 1)
Quarter: 2022Q1

REPORT INFORMATION
  Report Type: Spontaneous
  Country: US (occurrence: US)
  Receive Date: 20220127
  Receipt Date: 20220127
  Transmission Date: 20220424
  Serious: No
  Sender: FDA-Public Use
  Company Number: US-ALLERGAN-2128696US

PATIENT
  Age: 48 Year
  Sex: Female

DRUGS (8)
  1. BOTOX COSMETIC [Suspect]
     Active Substance: ONABOTULINUMTOXINA
     Indication: Skin wrinkling
     Dosage: 4 UNITS, SINGLE
     Dates: start: 202107, end: 202107
  2. BOTOX COSMETIC [Suspect]
     Active Substance: ONABOTULINUMTOXINA
     Indication: Skin wrinkling
     Dosage: 4 UNITS, SINGLE
     Dates: start: 202107, end: 202107
  3. BOTOX COSMETIC [Suspect]
     Active Substance: ONABOTULINUMTOXINA
     Indication: Skin wrinkling
     Dosage: UNK, SINGLE
     Dates: start: 202107, end: 202107
  4. BOTOX COSMETIC [Suspect]
     Active Substance: ONABOTULINUMTOXINA
     Indication: Skin wrinkling
     Dosage: UNK, SINGLE
     Dates: start: 202107, end: 202107
  5. BOTOX COSMETIC [Suspect]
     Active Substance: ONABOTULINUMTOXINA
     Indication: Skin wrinkling
     Dosage: UNK, SINGLE
     Dates: start: 202107, end: 202107
  6. BOTOX COSMETIC [Suspect]
     Active Substance: ONABOTULINUMTOXINA
     Dosage: 10 UNITS, SINGLE
     Dates: start: 202107, end: 202107
  7. ZINC [Concomitant]
     Active Substance: ZINC
  8. DYSPORT [Concomitant]
     Active Substance: ABOBOTULINUMTOXINA
     Dosage: 20 UNITS, SINGLE
     Dates: start: 20210819, end: 20210819

REACTIONS (2)
  - Off label use [Unknown]
  - Therapeutic response decreased [Unknown]
